FAERS Safety Report 6749842-8 (Version None)
Quarter: 2010Q2

REPORT INFORMATION
  Report Type: 
  Country: None (occurrence: None)
  Receive Date: 20100527
  Receipt Date: 20100521
  Transmission Date: 20101027
  Serious: Yes (Hospitalization)
  Sender: FDA-Public Use
  Company Number: TPA2010A01142

PATIENT
  Age: 80 Year
  Sex: Female

DRUGS (2)
  1. ACTOS [Suspect]
     Indication: DRUG USE FOR UNKNOWN INDICATION
     Dosage: 45MG, 1 IN 1 D, PER ORAL
     Route: 048
  2. INSULIN (INSULIN) [Concomitant]

REACTIONS (2)
  - FALL [None]
  - HIP FRACTURE [None]
